FAERS Safety Report 4789450-1 (Version None)
Quarter: 2005Q4

REPORT INFORMATION
  Report Type: 
  Country: None (occurrence: None)
  Receive Date: 20051004
  Receipt Date: 20051004
  Transmission Date: 20060501
  Serious: No
  Sender: FDA-Public Use
  Company Number: None

PATIENT
  Sex: Female

DRUGS (4)
  1. HUMULIN 70/30 [Suspect]
     Indication: DIABETES MELLITUS
     Dosage: 45 UNIT QAM/40 UNIT G PMSQ
     Route: 058
  2. FUROSEMIDE [Concomitant]
  3. ATORVASTATIN CALCIUM [Concomitant]
  4. ENALAPRIL [Concomitant]

REACTIONS (3)
  - DRUG DOSE OMISSION [None]
  - HYPERGLYCAEMIA [None]
  - TREATMENT NONCOMPLIANCE [None]
